FAERS Safety Report 16958548 (Version 1)
Quarter: 2019Q4

REPORT INFORMATION
  Report Type: Spontaneous
  Country: CN (occurrence: CN)
  Receive Date: 20191024
  Receipt Date: 20191024
  Transmission Date: 20200122
  Serious: Yes (Other)
  Sender: FDA-Public Use
  Company Number: CN-ELI_LILLY_AND_COMPANY-CN201910008534

PATIENT
  Sex: Male
  Weight: 87 kg

DRUGS (4)
  1. GEMZAR [Suspect]
     Active Substance: GEMCITABINE HYDROCHLORIDE
     Indication: SQUAMOUS CELL CARCINOMA OF LUNG
     Dosage: 2120 MG, UNKNOWN
     Route: 042
     Dates: start: 20190925
  2. SODIUM CHLORIDE. [Suspect]
     Active Substance: SODIUM CHLORIDE
     Dosage: 150 ML, UNKNOWN
     Route: 042
     Dates: start: 20190925
  3. SODIUM CHLORIDE. [Suspect]
     Active Substance: SODIUM CHLORIDE
     Indication: VEHICLE SOLUTION USE
     Dosage: 500 ML, UNKNOWN
     Route: 042
     Dates: start: 20190925
  4. NEDAPLATIN [Suspect]
     Active Substance: NEDAPLATIN
     Indication: LUNG NEOPLASM MALIGNANT
     Dosage: 170 MG, UNKNOWN
     Route: 042
     Dates: start: 20190925

REACTIONS (3)
  - Rash papular [Recovering/Resolving]
  - Pruritus [Recovered/Resolved]
  - Rash erythematous [Recovering/Resolving]

NARRATIVE: CASE EVENT DATE: 20190929
